FAERS Safety Report 25220898 (Version 1)
Quarter: 2025Q2

REPORT INFORMATION
  Report Type: Spontaneous
  Country: US (occurrence: US)
  Receive Date: 20250421
  Receipt Date: 20250421
  Transmission Date: 20250717
  Serious: Yes (Life-Threatening, Other)
  Sender: PFIZER
  Company Number: US-PFIZER INC-202500082094

PATIENT
  Age: 38 Year
  Sex: Female

DRUGS (6)
  1. CYTARABINE [Suspect]
     Active Substance: CYTARABINE
     Indication: Myeloid leukaemia
     Dosage: 2 MG/M2/DAY IV INFUSION OVER 4 H/CONTINUOUS INFUSION (DAY (D) 1 - D7)
     Route: 042
  2. FILGRASTIM [Suspect]
     Active Substance: FILGRASTIM
     Indication: Myeloid leukaemia
     Dosage: 300 UG/DAY (D1 - D5)
  3. VENETOCLAX [Suspect]
     Active Substance: VENETOCLAX
     Indication: Myeloid leukaemia
     Dosage: 400 MG/DAY (D0 - D14)
     Route: 048
  4. CLADRIBINE [Suspect]
     Active Substance: CLADRIBINE
     Indication: Myeloid leukaemia
     Dosage: 5 MG/M2/DAY (IV) INFUSION (D1 - D5)
     Route: 042
  5. DAUNORUBICIN [Suspect]
     Active Substance: DAUNORUBICIN
     Indication: Myeloid leukaemia
  6. ZARXIO [Concomitant]
     Active Substance: FILGRASTIM-SNDZ
     Indication: Full blood count abnormal

REACTIONS (6)
  - Thrombocytopenia [Unknown]
  - Febrile neutropenia [Recovered/Resolved]
  - Nausea [Recovered/Resolved]
  - Heavy menstrual bleeding [Recovered/Resolved]
  - Dizziness [Unknown]
  - Abdominal pain [Unknown]
